FAERS Safety Report 8835260 (Version 1)
Quarter: 2012Q4

REPORT INFORMATION
  Report Type: 
  Country: CH (occurrence: CH)
  Receive Date: 20121011
  Receipt Date: 20121011
  Transmission Date: 20130627
  Serious: Yes (Other)
  Sender: FDA-Public Use
  Company Number: CH-BAYER-2012-106529

PATIENT
  Age: 80 Year
  Sex: Female
  Weight: 53 kg

DRUGS (9)
  1. ASPIRIN CARDIO [Suspect]
     Dosage: 100 mg, QD
     Route: 048
     Dates: start: 2011, end: 20120514
  2. REMERON [Suspect]
     Dosage: 15 mg, QD
     Route: 041
     Dates: start: 2011, end: 20120514
  3. DAFALGAN [Suspect]
     Dosage: 1 g, TID
     Route: 048
     Dates: start: 20120606, end: 20120914
  4. SERESTA [Concomitant]
     Dosage: 7.5 mg, QID
     Route: 048
  5. BECOZYM FORTE [Concomitant]
     Dosage: 1 DF, QD
  6. THIAMINE [Concomitant]
     Dosage: 100 mg, QD
     Route: 048
     Dates: start: 20120514
  7. VITARUBIN [Concomitant]
     Dosage: 1000 ?g, Q1MON
     Route: 058
  8. BELOC ZOK [Concomitant]
     Dosage: 25 mg, QD
     Route: 048
  9. DISTRANEURIN [Concomitant]
     Dosage: 300 mg, QD
     Route: 048

REACTIONS (1)
  - Pancytopenia [Recovered/Resolved]
